FAERS Safety Report 20177460 (Version 2)
Quarter: 2021Q4

REPORT INFORMATION
  Report Type: Report from Study
  Country: FR (occurrence: FR)
  Receive Date: 20211213
  Receipt Date: 20211222
  Transmission Date: 20220303
  Serious: Yes (Hospitalization, Other)
  Sender: FDA-Public Use
  Company Number: FR-BRISTOL-MYERS SQUIBB COMPANY-BMS-2021-134106

PATIENT
  Age: 65 Year
  Sex: Male

DRUGS (4)
  1. BEMPEGALDESLEUKIN [Suspect]
     Active Substance: BEMPEGALDESLEUKIN
     Indication: Malignant melanoma
     Dosage: 0.006 MILLIGRAM/KILOGRAM, Q3WK; 0.53 MG
     Route: 042
     Dates: start: 20210816
  2. NIVOLUMAB [Suspect]
     Active Substance: NIVOLUMAB
     Indication: Malignant melanoma
     Dosage: 360 MILLIGRAM, Q3WK
     Route: 042
     Dates: start: 20210816
  3. FLECAINIDE [Concomitant]
     Active Substance: FLECAINIDE
     Indication: Arrhythmia
     Dosage: 100 MILLIGRAM, QD
     Route: 065
     Dates: start: 2006
  4. EZETIMIBE [Concomitant]
     Active Substance: EZETIMIBE
     Indication: Dyslipidaemia
     Dosage: 10 MILLIGRAM, QD
     Route: 065
     Dates: start: 2006

REACTIONS (2)
  - Myocarditis [Not Recovered/Not Resolved]
  - Cytokine release syndrome [Recovered/Resolved]

NARRATIVE: CASE EVENT DATE: 20211208
